FAERS Safety Report 18270667 (Version 1)
Quarter: 2020Q3

REPORT INFORMATION
  Report Type: Spontaneous
  Country: ES (occurrence: ES)
  Receive Date: 20200916
  Receipt Date: 20200916
  Transmission Date: 20201103
  Serious: Yes (Other)
  Sender: FDA-Public Use
  Company Number: ES-AUROBINDO-AUR-APL-2013-05492

PATIENT
  Age: 61 Year
  Sex: Female

DRUGS (2)
  1. MIRTAZAPINE. [Suspect]
     Active Substance: MIRTAZAPINE
     Indication: MAJOR DEPRESSION
  2. MIRTAZAPINE. [Suspect]
     Active Substance: MIRTAZAPINE
     Indication: SLEEP DISORDER
     Dosage: 15 MILLIGRAM, AT NIGHT
     Route: 065

REACTIONS (1)
  - Pleurothotonus [Recovered/Resolved]
